FAERS Safety Report 9693790 (Version 1)
Quarter: 2013Q4

REPORT INFORMATION
  Report Type: Spontaneous
  Country: JP (occurrence: JP)
  Receive Date: 20131118
  Receipt Date: 20131118
  Transmission Date: 20140711
  Serious: Yes (Other)
  Sender: FDA-Public Use
  Company Number: JP-PFIZER INC-2013325776

PATIENT
  Sex: Male

DRUGS (1)
  1. CARDENALIN [Suspect]
     Dosage: 1 MG, DAILY
     Route: 048
     Dates: start: 201307, end: 201311

REACTIONS (3)
  - Loss of consciousness [Not Recovered/Not Resolved]
  - Dizziness [Unknown]
  - Nausea [Unknown]
